FAERS Safety Report 4317364-X (Version None)
Quarter: 2004Q1

REPORT INFORMATION
  Report Type: 
  Country: None (occurrence: None)
  Receive Date: 20040316
  Receipt Date: 20040316
  Transmission Date: 20041129
  Serious: No
  Sender: FDA-Public Use
  Company Number: None

PATIENT
  Age: 37 Year
  Sex: Female
  Weight: 100.6985 kg

DRUGS (1)
  1. WELLBUTRIN [Suspect]
     Indication: EX-SMOKER
     Dosage: 150 MG BID

REACTIONS (2)
  - OEDEMA PERIPHERAL [None]
  - PRURITUS [None]
